FAERS Safety Report 9455487 (Version 1)
Quarter: 2013Q3

REPORT INFORMATION
  Report Type: Spontaneous
  Country: GB (occurrence: GB)
  Receive Date: 20130813
  Receipt Date: 20130813
  Transmission Date: 20140515
  Serious: Yes (Other)
  Sender: FDA-Public Use
  Company Number: GB-JNJFOC-20130804830

PATIENT
  Age: 51 Year
  Sex: Female

DRUGS (16)
  1. STELARA [Suspect]
     Indication: PRODUCT USED FOR UNKNOWN INDICATION
     Route: 058
     Dates: start: 20130806
  2. STELARA [Suspect]
     Indication: PRODUCT USED FOR UNKNOWN INDICATION
     Route: 058
     Dates: start: 20130516
  3. STELARA [Suspect]
     Indication: PRODUCT USED FOR UNKNOWN INDICATION
     Route: 058
     Dates: start: 20130321
  4. ALENDRONIC ACID [Concomitant]
     Route: 065
  5. EVOREL [Concomitant]
     Route: 065
  6. HYDROXYZINE [Concomitant]
     Route: 065
  7. HYOSCINE [Concomitant]
     Route: 065
  8. MEBEVERINE [Concomitant]
     Route: 065
  9. OMEPRAZOLE [Concomitant]
     Route: 065
  10. PARACETAMOL [Concomitant]
     Route: 065
  11. SERETIDE INHALER [Concomitant]
     Route: 065
  12. VENTOLIN [Concomitant]
     Route: 065
  13. TILDIEM [Concomitant]
     Route: 065
  14. TOLTERODINE [Concomitant]
     Route: 065
  15. ASPIRIN [Concomitant]
     Route: 065
  16. SIMVASTATIN [Concomitant]
     Route: 065

REACTIONS (1)
  - Nausea [Not Recovered/Not Resolved]
